FAERS Safety Report 16141498 (Version 1)
Quarter: 2019Q2

REPORT INFORMATION
  Report Type: Spontaneous
  Country: US (occurrence: US)
  Receive Date: 20190331
  Receipt Date: 20190331
  Transmission Date: 20190711
  Serious: Yes (Other)
  Sender: FDA-Public Use
  Company Number: None

PATIENT
  Age: 65 Year
  Sex: Female
  Weight: 76 kg

DRUGS (1)
  1. PACLITAXEL. [Suspect]
     Active Substance: PACLITAXEL
     Dates: start: 20120810, end: 20120910

REACTIONS (4)
  - Diplopia [None]
  - Fall [None]
  - Dizziness [None]
  - Temperature intolerance [None]

NARRATIVE: CASE EVENT DATE: 20190326
